FAERS Safety Report 6144668-0 (Version None)
Quarter: 2009Q2

REPORT INFORMATION
  Report Type: 
  Country: None (occurrence: None)
  Receive Date: 20090406
  Receipt Date: 20090331
  Transmission Date: 20091009
  Serious: Yes (Other)
  Sender: FDA-Public Use
  Company Number: B0539752A

PATIENT
  Sex: Female

DRUGS (7)
  1. SERETIDE [Suspect]
     Indication: BRONCHIECTASIS
     Dosage: 1PUFF TWICE PER DAY
     Route: 055
     Dates: start: 20070101
  2. VENTOLIN [Suspect]
     Indication: BRONCHIECTASIS
     Dosage: 100MCG AS REQUIRED
     Route: 055
  3. COLOMYCIN [Suspect]
     Indication: BRONCHIECTASIS
     Dosage: 1UNIT TWICE PER DAY
     Route: 055
  4. LETROZOLE [Suspect]
     Indication: BREAST CANCER
     Dosage: 2.5TAB PER DAY
     Route: 048
  5. FLUCONAZOLE [Suspect]
     Route: 065
  6. INFLUENZA VACCINE [Suspect]
     Indication: PROPHYLAXIS
     Route: 065
     Dates: start: 20081001, end: 20081001
  7. ERYTHROMYCIN [Suspect]
     Indication: DRUG USE FOR UNKNOWN INDICATION
     Route: 065

REACTIONS (9)
  - COUGH [None]
  - DYSPNOEA [None]
  - MALAISE [None]
  - MIGRAINE [None]
  - MUSCLE SPASMS [None]
  - ORAL CANDIDIASIS [None]
  - PNEUMONIA [None]
  - PRODUCTIVE COUGH [None]
  - WHEEZING [None]
